FAERS Safety Report 6159736-7 (Version None)
Quarter: 2009Q2

REPORT INFORMATION
  Report Type: 
  Country: None (occurrence: None)
  Receive Date: 20090420
  Receipt Date: 20090416
  Transmission Date: 20091009
  Serious: Yes (Hospitalization)
  Sender: FDA-Public Use
  Company Number: NL-BAYER-200918487GPV

PATIENT
  Age: 69 Year
  Sex: Male

DRUGS (7)
  1. SORAFENIB [Suspect]
     Indication: METASTATIC RENAL CELL CARCINOMA
     Dosage: TOTAL DAILY DOSE: 800 MG
     Route: 048
     Dates: start: 20090402
  2. METOCLOPRAMIDE [Concomitant]
     Indication: NAUSEA
     Dosage: TOTAL DAILY DOSE: 30 MG
     Route: 048
  3. SYMORON [Concomitant]
     Indication: PAIN
     Dosage: TOTAL DAILY DOSE: 20 MG
     Route: 065
  4. TAMSULOSIN HCL [Concomitant]
     Indication: PROSTATIC DISORDER
     Dosage: 1X0.4MG FOR LONGER PERIOD
     Route: 065
  5. GABAPENTIN [Concomitant]
     Indication: PARAESTHESIA
     Dosage: TOTAL DAILY DOSE: 1200 MG
     Route: 065
  6. MOVICOLON [Concomitant]
     Indication: CONSTIPATION
     Route: 065
     Dates: end: 20090404
  7. ACETAMINOPHEN [Concomitant]
     Indication: PAIN
     Dosage: TOTAL DAILY DOSE: 3000 MG
     Route: 065
     Dates: end: 20090406

REACTIONS (6)
  - ALOPECIA [None]
  - BALANCE DISORDER [None]
  - CONFUSIONAL STATE [None]
  - DIARRHOEA [None]
  - MALAISE [None]
  - RASH [None]
